FAERS Safety Report 9918700 (Version 1)
Quarter: 2014Q1

REPORT INFORMATION
  Report Type: Report from Study
  Country: US (occurrence: US)
  Receive Date: 20140224
  Receipt Date: 20140224
  Transmission Date: 20141002
  Serious: Yes (Other)
  Sender: FDA-Public Use
  Company Number: US-ROCHE-1330475

PATIENT
  Age: 48 Year
  Sex: Female

DRUGS (3)
  1. LUCENTIS [Suspect]
     Indication: CYSTOID MACULAR OEDEMA
     Route: 050
     Dates: start: 20110831
  2. AVASTIN [Suspect]
     Indication: PRODUCT USED FOR UNKNOWN INDICATION
     Route: 050
  3. ZYMAXID [Concomitant]

REACTIONS (5)
  - Macular oedema [Unknown]
  - Muscle twitching [Unknown]
  - Dry eye [Unknown]
  - Drug ineffective [Unknown]
  - Retinal exudates [Unknown]
